FAERS Safety Report 8700073 (Version 2)
Quarter: 2013Q1

REPORT INFORMATION
  Report Type: Report from Study
  Country: US (occurrence: US)
  Receive Date: 20120802
  Receipt Date: 20130123
  Transmission Date: 20140127
  Serious: Yes (Hospitalization, Other)
  Sender: FDA-Public Use
  Company Number: US-ABBOTT-12P-163-0953097-00

PATIENT
  Age: 37 Year
  Sex: Female
  Weight: 45.4 kg

DRUGS (9)
  1. HUMIRA 40 MG/0.8 ML PEN [Suspect]
     Indication: CROHN^S DISEASE
     Dosage: UNKNOWN STARTING DOSE
     Dates: start: 20120703, end: 20120703
  2. SOLU-MEDROL [Concomitant]
     Indication: CROHN^S DISEASE
     Route: 042
     Dates: start: 20120702
  3. RECLAST INFUSION [Concomitant]
     Indication: OSTEOPOROSIS
  4. ANUSOL [Concomitant]
     Indication: HAEMORRHOIDS
     Dosage: AS NEEDED TWICE DAILY
  5. MELOXICAM [Concomitant]
     Indication: PRODUCT USED FOR UNKNOWN INDICATION
     Dosage: AT NIGHT
  6. METHACARBAMOL [Concomitant]
     Indication: PRODUCT USED FOR UNKNOWN INDICATION
  7. CLARITIN [Concomitant]
     Indication: SEASONAL ALLERGY
  8. ALLEGRA [Concomitant]
     Indication: SEASONAL ALLERGY
  9. BENADRYL [Concomitant]
     Indication: SEASONAL ALLERGY

REACTIONS (16)
  - Haemorrhoids [Not Recovered/Not Resolved]
  - Crohn^s disease [Recovering/Resolving]
  - Injection site laceration [Recovering/Resolving]
  - Injection site pain [Recovering/Resolving]
  - Injection site pain [Recovering/Resolving]
  - Injection site erythema [Recovering/Resolving]
  - Injection site bruising [Recovering/Resolving]
  - Injection site haemorrhage [Recovering/Resolving]
  - Crohn^s disease [Recovered/Resolved]
  - Malaise [Not Recovered/Not Resolved]
  - Drug ineffective [Unknown]
  - Injection site pain [Not Recovered/Not Resolved]
  - Injection site bruising [Not Recovered/Not Resolved]
  - Injection site haemorrhage [Unknown]
  - Abdominal pain [Unknown]
  - Haemorrhage [Unknown]
